FAERS Safety Report 10488181 (Version 1)
Quarter: 2014Q4

REPORT INFORMATION
  Report Type: Spontaneous
  Country: US (occurrence: US)
  Receive Date: 20141002
  Receipt Date: 20141002
  Transmission Date: 20150528
  Serious: Yes (Other)
  Sender: FDA-Public Use
  Company Number: US-TEVA-496468USA

PATIENT
  Age: 29 Year
  Sex: Female

DRUGS (2)
  1. CARBAMAZEPINE. [Suspect]
     Active Substance: CARBAMAZEPINE
  2. CLOZAPINE. [Interacting]
     Active Substance: CLOZAPINE

REACTIONS (2)
  - Granulocytopenia [Unknown]
  - Drug interaction [Unknown]
